FAERS Safety Report 4843861-4 (Version None)
Quarter: 2005Q4

REPORT INFORMATION
  Report Type: 
  Country: None (occurrence: None)
  Receive Date: 20051201
  Receipt Date: 20051201
  Transmission Date: 20060501
  Serious: Yes (Life-Threatening)
  Sender: FDA-Public Use
  Company Number: None

PATIENT
  Sex: Male

DRUGS (1)
  1. CYPHER MEDICATED STENT [Suspect]
     Dates: start: 20050616

REACTIONS (6)
  - ARTERIAL INJURY [None]
  - ARTERIAL OCCLUSIVE DISEASE [None]
  - CARDIAC PROCEDURE COMPLICATION [None]
  - DEVICE FAILURE [None]
  - LOSS OF CONSCIOUSNESS [None]
  - THROMBOSIS [None]
